FAERS Safety Report 7243710-3 (Version None)
Quarter: 2011Q1

REPORT INFORMATION
  Report Type: 
  Country: None (occurrence: None)
  Receive Date: 20110125
  Receipt Date: 20110121
  Transmission Date: 20110831
  Serious: No
  Sender: FDA-Public Use
  Company Number: US-PFIZER INC-2011015632

PATIENT
  Sex: Female
  Weight: 56.236 kg

DRUGS (17)
  1. POTASSIUM CITRATE [Concomitant]
     Indication: OSTEOPENIA
     Dosage: 99 MG, DAILY
  2. AROMASIN [Suspect]
     Indication: BREAST CANCER
     Dosage: 25 MG, 1X/DAY
     Route: 048
     Dates: start: 20101101
  3. CALCIUM [Concomitant]
     Indication: OSTEOPENIA
     Dosage: 1000 MG, DAILY
  4. SPIRULINA [Concomitant]
     Indication: OSTEOPENIA
     Dosage: 1/2 TEASPOON, DAILY
  5. PSYLLIUM [Concomitant]
     Indication: OSTEOPENIA
     Dosage: 1 DF, 1X/DAY
  6. OCUVITE LUTEIN [Concomitant]
     Indication: OSTEOPENIA
     Dosage: 1 DF, 1X/DAY
  7. ZINC [Concomitant]
     Indication: OSTEOPENIA
     Dosage: 10 MG, DAILY
  8. VITAMIN A [Concomitant]
     Indication: OSTEOPENIA
     Dosage: 25000 IU, DAILY
  9. VITAMIN K TAB [Concomitant]
     Indication: OSTEOPENIA
     Dosage: 100 MCG, DAILY
  10. MAGNESIUM OXIDE [Concomitant]
     Indication: OSTEOPENIA
     Dosage: 500 MG, DAILY
  11. COPPER GLUCONATE [Concomitant]
     Indication: OSTEOPENIA
     Dosage: 1 MG, DAILY
  12. RED YEAST RICE [Concomitant]
     Indication: OSTEOPENIA
     Dosage: 600 MG, DAILY
  13. FLAXSEED OIL [Concomitant]
     Indication: OSTEOPENIA
     Dosage: 3 DF, 1X/DAY
  14. ASCORBIC ACID [Concomitant]
     Indication: OSTEOPENIA
     Dosage: 1000 MG, DAILY
  15. VITAMIN D [Concomitant]
     Indication: OSTEOPENIA
     Dosage: 2000 IU, DAILY
  16. VITAMIN E [Concomitant]
     Indication: OSTEOPENIA
     Dosage: 400 IU, DAILY
  17. MANGANESE CITRATE [Concomitant]
     Indication: OSTEOPENIA
     Dosage: 1 MG, DAILY

REACTIONS (1)
  - PALPITATIONS [None]
